FAERS Safety Report 11753918 (Version 1)
Quarter: 2015Q4

REPORT INFORMATION
  Report Type: Spontaneous
  Country: US (occurrence: US)
  Receive Date: 20151119
  Receipt Date: 20151119
  Transmission Date: 20160304
  Serious: No
  Sender: FDA-Public Use
  Company Number: US-LUNDBECK-DKLU2005276

PATIENT
  Sex: Female

DRUGS (1)
  1. NORTHERA [Suspect]
     Active Substance: DROXIDOPA
     Indication: PRODUCT USED FOR UNKNOWN INDICATION
     Route: 065

REACTIONS (7)
  - Restless legs syndrome [Unknown]
  - Insomnia [Unknown]
  - Hypoaesthesia [Unknown]
  - Nausea [Unknown]
  - Vision blurred [Unknown]
  - Feeling abnormal [Unknown]
  - Headache [Unknown]
